FAERS Safety Report 14055987 (Version 8)
Quarter: 2022Q3

REPORT INFORMATION
  Report Type: Report from Study
  Country: JP (occurrence: JP)
  Receive Date: 20171006
  Receipt Date: 20220720
  Transmission Date: 20221027
  Serious: Yes (Hospitalization, Other)
  Sender: FDA-Public Use
  Company Number: JP-BRISTOL-MYERS SQUIBB COMPANY-BMS-2017-089011

PATIENT
  Age: 71 Year
  Sex: Female
  Weight: 51 kg

DRUGS (3)
  1. YERVOY [Suspect]
     Active Substance: IPILIMUMAB
     Indication: Malignant melanoma
     Dosage: 3 MG/KG
     Route: 041
     Dates: start: 20190307
  2. NIVOLUMAB [Suspect]
     Active Substance: NIVOLUMAB
     Indication: Malignant melanoma
     Dosage: 3 MG/KG, UNK
     Route: 041
     Dates: start: 20170111
  3. CALONAL [Concomitant]
     Active Substance: ACETAMINOPHEN
     Indication: Product used for unknown indication
     Dosage: UNK, PRN
     Route: 065
     Dates: start: 20180524

REACTIONS (5)
  - Pemphigoid [Recovered/Resolved]
  - Forearm fracture [Recovered/Resolved]
  - Femur fracture [Unknown]
  - Fall [Unknown]
  - Malignant neoplasm progression [Not Recovered/Not Resolved]

NARRATIVE: CASE EVENT DATE: 20170928
